FAERS Safety Report 4394115-4 (Version None)
Quarter: 2004Q3

REPORT INFORMATION
  Report Type: 
  Country: None (occurrence: None)
  Receive Date: 20040712
  Receipt Date: 20040623
  Transmission Date: 20050211
  Serious: Yes (Other)
  Sender: FDA-Public Use
  Company Number: GB-BRISTOL-MYERS SQUIBB COMPANY-12635520

PATIENT
  Sex: Female

DRUGS (3)
  1. ENDOXAN [Suspect]
     Route: 042
  2. DOXORUBICIN HCL [Suspect]
     Route: 042
  3. SODIUM CHLORIDE INJ [Concomitant]

REACTIONS (5)
  - BODY TEMPERATURE DECREASED [None]
  - CARDIAC DISORDER [None]
  - DIZZINESS [None]
  - NAUSEA [None]
  - VOMITING [None]
